FAERS Safety Report 7014378-6 (Version None)
Quarter: 2010Q3

REPORT INFORMATION
  Report Type: 
  Country: None (occurrence: None)
  Receive Date: 20100924
  Receipt Date: 20100924
  Transmission Date: 20110219
  Serious: Yes (Hospitalization)
  Sender: FDA-Public Use
  Company Number: None

PATIENT
  Age: 74 Year
  Sex: Male
  Weight: 75 kg

DRUGS (1)
  1. RISPERIDONE [Suspect]
     Indication: DIABETES MELLITUS
     Dates: start: 20100907, end: 20100911

REACTIONS (2)
  - DRUG DISPENSING ERROR [None]
  - HYPERGLYCAEMIA [None]
